FAERS Safety Report 19454409 (Version 7)
Quarter: 2022Q2

REPORT INFORMATION
  Report Type: Report from Study
  Country: ES (occurrence: None)
  Receive Date: 20210623
  Receipt Date: 20220428
  Transmission Date: 20220721
  Serious: Yes (Hospitalization)
  Sender: FDA-Public Use
  Company Number: ES-ROCHE-2852845

PATIENT
  Age: 62 Year
  Sex: Female
  Weight: 84 kg

DRUGS (17)
  1. TIRAGOLUMAB [Suspect]
     Active Substance: TIRAGOLUMAB
     Indication: Non-small cell lung cancer
     Dosage: DATE OF MOST RECENT DOSE OF TIRAGOLUMAB PRIOR TO AE/SAE: 06/MAY/2021
     Route: 042
     Dates: start: 20210506
  2. ATEZOLIZUMAB [Suspect]
     Active Substance: ATEZOLIZUMAB
     Indication: Non-small cell lung cancer
     Dosage: DATE OF MOST RECENT DOSE OF ATEZOLIZUMAB PRIOR TO AE/SAE ONSET: 17/JUN/2021
     Route: 041
     Dates: start: 20210506
  3. ATEZOLIZUMAB [Suspect]
     Active Substance: ATEZOLIZUMAB
     Indication: Non-small cell lung cancer
     Dosage: DATE OF MOST RECENT DOSE OF PRIOR TO AE/SAE ONSET: 17/JUN/2021
     Route: 041
     Dates: start: 20210506
  4. CISPLATIN [Suspect]
     Active Substance: CISPLATIN
     Indication: Non-small cell lung cancer
     Dosage: DATE OF MOST RECENT DOSE (160 MG) OF CISPLATIN PRIOR TO AE/SAE: 06/MAY/2021
     Route: 042
     Dates: start: 20210506
  5. PEMETREXED [Suspect]
     Active Substance: PEMETREXED
     Indication: Non-small cell lung cancer
     Dosage: DATE OF MOST RECENT DOSE (1100 MG) OF PEMETREXED PRIOR TO AE/SAE: 06/MAY/2021
     Route: 042
     Dates: start: 20210506
  6. OMEPRAZOLE [Concomitant]
     Active Substance: OMEPRAZOLE
     Dosage: GIVEN FOR PROPHYLAXIS YES
     Route: 048
     Dates: start: 20210424
  7. BISOPROLOL [Concomitant]
     Active Substance: BISOPROLOL
     Indication: Hypertension
     Route: 048
     Dates: start: 20210424
  8. METHIMAZOLE [Concomitant]
     Active Substance: METHIMAZOLE
     Indication: Hyperthyroidism
     Route: 048
  9. OLMESARTAN [Concomitant]
     Active Substance: OLMESARTAN
     Indication: Hypertension
     Route: 048
     Dates: start: 20151027
  10. ACETAMINOPHEN [Concomitant]
     Active Substance: ACETAMINOPHEN
     Indication: Pain
     Dosage: GIVEN FOR PROPHYLAXIS YES
     Route: 048
     Dates: start: 20210426
  11. FOLIC ACID [Concomitant]
     Active Substance: FOLIC ACID
     Indication: Prophylaxis
     Route: 048
     Dates: start: 20210506
  12. DEXTROMETORFAN [Concomitant]
     Indication: Cough
     Dosage: 1 GTT
     Route: 048
     Dates: start: 20210520
  13. LEVOFLOXACIN [Concomitant]
     Active Substance: LEVOFLOXACIN
     Route: 048
     Dates: start: 20210601, end: 20210608
  14. LINEZOLID [Concomitant]
     Active Substance: LINEZOLID
     Route: 048
     Dates: start: 20210603, end: 20210608
  15. PIPERACILLIN SODIUM\TAZOBACTAM SODIUM [Concomitant]
     Active Substance: PIPERACILLIN SODIUM\TAZOBACTAM SODIUM
     Route: 042
     Dates: start: 20210526, end: 20210603
  16. INDOMETHACIN [Concomitant]
     Active Substance: INDOMETHACIN
     Indication: Prophylaxis
     Route: 048
     Dates: start: 20210604
  17. CODEINE [Concomitant]
     Active Substance: CODEINE
     Route: 048
     Dates: start: 20210423

REACTIONS (1)
  - Anaphylactic shock [Recovered/Resolved]

NARRATIVE: CASE EVENT DATE: 20210617
